FAERS Safety Report 8428756 (Version 7)
Quarter: 2013Q2

REPORT INFORMATION
  Report Type: Report from Study
  Country: CA (occurrence: CA)
  Receive Date: 20120227
  Receipt Date: 20130626
  Transmission Date: 20140414
  Serious: Yes (Hospitalization, Other)
  Sender: FDA-Public Use
  Company Number: CA-ROCHE-1041775

PATIENT
  Age: 58 Year
  Sex: Female
  Weight: 74.8 kg

DRUGS (9)
  1. ACTEMRA [Suspect]
     Indication: RHEUMATOID ARTHRITIS
     Route: 042
     Dates: start: 20110627, end: 20110825
  2. ACTEMRA [Suspect]
     Route: 042
     Dates: start: 20110825, end: 20120531
  3. RITUXAN [Suspect]
     Indication: RHEUMATOID ARTHRITIS
     Route: 042
     Dates: start: 20120924
  4. PREDNISONE [Concomitant]
  5. CELEBREX [Concomitant]
  6. ACTONEL [Concomitant]
  7. TYLENOL #3 (CANADA) [Concomitant]
  8. OXYCODONE [Concomitant]
  9. CYMBALTA [Concomitant]

REACTIONS (12)
  - Depression [Unknown]
  - Breast cyst [Unknown]
  - Fibromyalgia [Unknown]
  - Suicidal ideation [Unknown]
  - Thrombosis [Recovered/Resolved]
  - Hip arthroplasty [Recovering/Resolving]
  - Ill-defined disorder [Unknown]
  - Rheumatoid arthritis [Not Recovered/Not Resolved]
  - Rash [Recovered/Resolved]
  - Pruritus [Recovered/Resolved]
  - Local swelling [Recovered/Resolved]
  - Local swelling [Recovered/Resolved]
